FAERS Safety Report 5142103-2 (Version None)
Quarter: 2006Q4

REPORT INFORMATION
  Report Type: 
  Country: None (occurrence: None)
  Receive Date: 20061102
  Receipt Date: 20061004
  Transmission Date: 20070319
  Serious: Yes (Other)
  Sender: FDA-Public Use
  Company Number: PHFR2006GB02986

PATIENT

DRUGS (1)
  1. EXELON [Suspect]
     Route: 065

REACTIONS (2)
  - GASTROINTESTINAL TUBE INSERTION [None]
  - INTESTINAL OBSTRUCTION [None]
